FAERS Safety Report 8641434 (Version 3)
Quarter: 2012Q4

REPORT INFORMATION
  Report Type: 
  Country: JP (occurrence: JP)
  Receive Date: 20120628
  Receipt Date: 20120924
  Transmission Date: 20130627
  Serious: Yes (Death, Other)
  Sender: FDA-Public Use
  Company Number: PHHY2012JP055273

PATIENT
  Age: 60 Year
  Sex: Female

DRUGS (4)
  1. ZOLEDRONIC ACID [Suspect]
     Indication: METASTASES TO BONE
     Dosage: UNK UKN, UNK
     Route: 041
  2. CHEMOTHERAPEUTICS [Concomitant]
  3. VOLTAREN [Concomitant]
     Dosage: 75 mg, UNK
     Route: 048
  4. FERROMIA [Concomitant]
     Dosage: 100 mg, UNK
     Route: 048

REACTIONS (4)
  - Breast cancer metastatic [Fatal]
  - Osteonecrosis of jaw [Recovered/Resolved]
  - Oral infection [Unknown]
  - Periodontal disease [Unknown]
